FAERS Safety Report 9579293 (Version 2)
Quarter: 2013Q4

REPORT INFORMATION
  Report Type: Spontaneous
  Country: US (occurrence: US)
  Receive Date: 20131001
  Receipt Date: 20131001
  Transmission Date: 20140711
  Serious: No
  Sender: FDA-Public Use
  Company Number: US-AMGEN-USASP2013002923

PATIENT
  Age: 32 Year
  Sex: Female
  Weight: 110.66 kg

DRUGS (7)
  1. ENBREL [Suspect]
     Indication: RHEUMATOID ARTHRITIS
     Dosage: 50 MG/ML, QWK
     Route: 058
     Dates: start: 20121212
  2. PREDNISONE [Concomitant]
     Dosage: 1 MG, UNK
  3. URSODIOL [Concomitant]
     Dosage: 500 MG, UNK
  4. LEVOTHYROXIN [Concomitant]
     Dosage: 300 MUG, UNK
  5. PRILOSEC                           /00661201/ [Concomitant]
     Dosage: 40 MG, UNK
  6. CALCIUM 500+D [Concomitant]
     Dosage: UNK
  7. MULTIVITAMINS, PLAIN [Concomitant]
     Dosage: UNK

REACTIONS (6)
  - Injection site reaction [Unknown]
  - Injection site erythema [Unknown]
  - Injection site pain [Unknown]
  - Injection site mass [Unknown]
  - Cough [Unknown]
  - Rhinorrhoea [Unknown]
